FAERS Safety Report 23610880 (Version 1)
Quarter: 2024Q1

REPORT INFORMATION
  Report Type: Spontaneous
  Country: CN (occurrence: CN)
  Receive Date: 20240308
  Receipt Date: 20240308
  Transmission Date: 20240410
  Serious: Yes (Hospitalization, Disabling, Other)
  Sender: FDA-Public Use
  Company Number: CN-PFIZER INC-PV202400031887

PATIENT
  Age: 15 Year
  Sex: Male
  Weight: 52.6 kg

DRUGS (3)
  1. CYTARABINE [Suspect]
     Active Substance: CYTARABINE
     Indication: Acute myeloid leukaemia
     Dosage: 36 MG, 1X/DAY
     Route: 041
     Dates: start: 20240104, end: 20240104
  2. CYTARABINE [Suspect]
     Active Substance: CYTARABINE
     Indication: Acute myeloid leukaemia
     Dosage: 1000 MG, 2X/DAY
     Route: 041
     Dates: start: 20240105, end: 20240107
  3. IDARUBICIN [Concomitant]
     Active Substance: IDARUBICIN
     Dosage: 30 MG/TOTAL
     Dates: start: 20240105

REACTIONS (6)
  - Peripheral nerve injury [Recovered/Resolved with Sequelae]
  - Pyrexia [Unknown]
  - Granulocyte count decreased [Unknown]
  - Haemoglobin decreased [Unknown]
  - White blood cell count decreased [Unknown]
  - Platelet count decreased [Unknown]

NARRATIVE: CASE EVENT DATE: 20240117
